FAERS Safety Report 11706427 (Version 1)
Quarter: 2015Q4

REPORT INFORMATION
  Report Type: Spontaneous
  Country: IN (occurrence: IN)
  Receive Date: 20151106
  Receipt Date: 20151106
  Transmission Date: 20160304
  Serious: Yes (Other)
  Sender: FDA-Public Use
  Company Number: IN-VALIDUS PHARMACEUTICALS LLC-IN-2015VAL000663

PATIENT

DRUGS (1)
  1. CARBAMAZEPINE. [Suspect]
     Active Substance: CARBAMAZEPINE
     Indication: PRODUCT USED FOR UNKNOWN INDICATION
     Dosage: UNK

REACTIONS (6)
  - Lymphadenopathy [Unknown]
  - Blood alkaline phosphatase increased [Recovered/Resolved]
  - Rash [Unknown]
  - Drug hypersensitivity [Unknown]
  - Pyrexia [Unknown]
  - Drug-induced liver injury [Unknown]
